FAERS Safety Report 6174884-3 (Version None)
Quarter: 2009Q2

REPORT INFORMATION
  Report Type: 
  Country: None (occurrence: None)
  Receive Date: 20090430
  Receipt Date: 20081212
  Transmission Date: 20091009
  Serious: No
  Sender: FDA-Public Use
  Company Number: US-ASTRAZENECA-2008UW27888

PATIENT
  Age: 57 Year
  Sex: Female
  Weight: 64 kg

DRUGS (7)
  1. NEXIUM [Suspect]
     Indication: GASTROOESOPHAGEAL REFLUX DISEASE
     Route: 048
  2. SUPPLEMENTAL VITAMINS [Concomitant]
  3. XANAX [Concomitant]
  4. FISH OIL [Concomitant]
  5. ASCORBIC ACID [Concomitant]
  6. COENZYME Q10 [Concomitant]
  7. LIPITOR [Concomitant]

REACTIONS (3)
  - BONE PAIN [None]
  - SERUM FERRITIN DECREASED [None]
  - VITAMIN D DECREASED [None]
